FAERS Safety Report 23409351 (Version 2)
Quarter: 2024Q1

REPORT INFORMATION
  Report Type: Spontaneous
  Country: US (occurrence: US)
  Receive Date: 20240117
  Receipt Date: 20240229
  Transmission Date: 20240410
  Serious: No
  Sender: FDA-Public Use
  Company Number: US-SA-SAC20240111001062

PATIENT
  Age: 37 Year
  Sex: Female

DRUGS (2)
  1. DUPIXENT [Suspect]
     Active Substance: DUPILUMAB
     Indication: Eosinophilic oesophagitis
     Dosage: 300 MG QW
     Route: 058
     Dates: start: 202209
  2. DUPIXENT [Suspect]
     Active Substance: DUPILUMAB
     Dosage: 300 MG QW
     Route: 058
     Dates: start: 202310

REACTIONS (5)
  - Cough [Unknown]
  - Stomatitis [Recovered/Resolved]
  - Acne cystic [Unknown]
  - Gingival pain [Unknown]
  - Gingivitis [Unknown]
